FAERS Safety Report 8432084-8 (Version None)
Quarter: 2012Q2

REPORT INFORMATION
  Report Type: 
  Country: None (occurrence: None)
  Receive Date: 20120613
  Receipt Date: 20120605
  Transmission Date: 20120825
  Serious: Yes (Hospitalization, Other)
  Sender: FDA-Public Use
  Company Number: CN-ABBOTT-12P-035-0943893-00

PATIENT
  Age: 3 Year
  Sex: Male

DRUGS (1)
  1. DEPAKENE [Suspect]
     Indication: EPILEPSY
     Dosage: 40 MG, 3.5 MILLILITRE (S); TWICE A DAY
     Route: 048
     Dates: start: 20120517, end: 20120518

REACTIONS (5)
  - SOMNOLENCE [None]
  - EPILEPSY [None]
  - MUSCLE TWITCHING [None]
  - DRUG INEFFECTIVE [None]
  - DRUG LEVEL BELOW THERAPEUTIC [None]
